FAERS Safety Report 10029340 (Version 5)
Quarter: 2014Q3

REPORT INFORMATION
  Report Type: Spontaneous
  Country: GB (occurrence: GB)
  Receive Date: 20140321
  Receipt Date: 20140901
  Transmission Date: 20150326
  Serious: Yes (Death, Hospitalization, Other)
  Sender: FDA-Public Use
  Company Number: PHFR2014GB002091

PATIENT
  Age: 51 Year
  Sex: Male

DRUGS (7)
  1. SALMETEROL [Concomitant]
     Active Substance: SALMETEROL
     Dosage: 25 UG, BID
     Route: 055
  2. VENLAFAXINE [Concomitant]
     Active Substance: VENLAFAXINE HYDROCHLORIDE
     Dosage: 375 MG, BID
     Route: 048
  3. CLOZARIL [Suspect]
     Active Substance: CLOZAPINE
     Indication: SCHIZOPHRENIA
     Dosage: 275 MG, DAILY
     Route: 048
     Dates: start: 20051130
  4. FYBOGEL [Concomitant]
     Active Substance: PLANTAGO OVATA SEED
     Dosage: UNK
     Route: 048
  5. CAVISAN [Concomitant]
     Dosage: 15 ML, BID
     Route: 048
  6. TIOTROPIUM [Concomitant]
     Active Substance: TIOTROPIUM
     Dosage: UNK
     Route: 055
  7. SODIUM VALPROATE [Concomitant]
     Active Substance: VALPROATE SODIUM
     Dosage: 700 MG, BID
     Route: 048

REACTIONS (11)
  - Cardiac arrest [Unknown]
  - Arrhythmia [Fatal]
  - Myocardial infarction [Fatal]
  - Unresponsive to stimuli [Unknown]
  - Blood gases abnormal [Unknown]
  - Platelet count decreased [Unknown]
  - Arthralgia [Unknown]
  - Head injury [Unknown]
  - Chronic obstructive pulmonary disease [Unknown]
  - Circulatory collapse [Unknown]
  - Convulsion [Fatal]

NARRATIVE: CASE EVENT DATE: 201203
